FAERS Safety Report 24046956 (Version 1)
Quarter: 2024Q3

REPORT INFORMATION
  Report Type: Report from Study
  Country: IT (occurrence: IT)
  Receive Date: 20240703
  Receipt Date: 20240703
  Transmission Date: 20241016
  Serious: Yes (Other)
  Sender: TEVA
  Company Number: None

PATIENT
  Age: 80 Year
  Sex: Female
  Weight: 54 kg

DRUGS (5)
  1. FLUOROURACIL [Suspect]
     Active Substance: FLUOROURACIL
     Indication: Colon neoplasm
     Dosage: DOSAGE: 3950 MG/ML 3950 MG/96 ML, FLUOROURACILE TEVA
     Route: 042
     Dates: start: 20240325, end: 20240325
  2. LEVOLEUCOVORIN CALCIUM [Concomitant]
     Active Substance: LEVOLEUCOVORIN CALCIUM
     Indication: Chemotherapy
     Dosage: DOSAGE: 140 MG/ML 140 MG/250 ML
     Route: 042
     Dates: start: 20240325, end: 20240325
  3. ERBITUX [Suspect]
     Active Substance: CETUXIMAB
     Indication: Colon neoplasm
     Dosage: DOSAGE: 700 MG/ML 700 MG/ 250 ML
     Route: 042
     Dates: start: 20240325, end: 20240325
  4. IRINOTECAN [Suspect]
     Active Substance: IRINOTECAN
     Indication: Colon neoplasm
     Dosage: DOSAGE: 250 MG/ML 250 MG/250 ML
     Route: 042
     Dates: start: 20240325, end: 20240325
  5. OLMESARTAN MEDOXOMIL [Concomitant]
     Active Substance: OLMESARTAN MEDOXOMIL
     Indication: Hypertension
     Route: 048

REACTIONS (1)
  - Neutropenia [Recovered/Resolved]

NARRATIVE: CASE EVENT DATE: 20240408
